FAERS Safety Report 5679932-2 (Version None)
Quarter: 2008Q1

REPORT INFORMATION
  Report Type: 
  Country: None (occurrence: None)
  Receive Date: 20080324
  Receipt Date: 20080117
  Transmission Date: 20080703
  Serious: Yes (Hospitalization)
  Sender: FDA-Public Use
  Company Number: 8020927

PATIENT
  Sex: Female
  Weight: 13 kg

DRUGS (2)
  1. KEPPRA [Suspect]
     Dates: start: 20060301
  2. KEPPRA [Suspect]
     Dates: start: 20060601

REACTIONS (2)
  - EPILEPSY [None]
  - MENTAL RETARDATION [None]
